FAERS Safety Report 6762356-4 (Version None)
Quarter: 2010Q2

REPORT INFORMATION
  Report Type: 
  Country: None (occurrence: None)
  Receive Date: 20100609
  Receipt Date: 20100603
  Transmission Date: 20101027
  Serious: Yes (Death)
  Sender: FDA-Public Use
  Company Number: US-GILEAD-2010-0029595

PATIENT
  Sex: Male

DRUGS (18)
  1. LETAIRIS [Suspect]
     Indication: PULMONARY ARTERIAL HYPERTENSION
     Route: 048
     Dates: start: 20091029, end: 20100427
  2. ASPIRIN [Concomitant]
  3. BUMETANIDE [Concomitant]
  4. FUROSEMIDE [Concomitant]
  5. SPIRONOLACTONE [Concomitant]
  6. METOLAZONE [Concomitant]
  7. MIDODRINE HYDROCHLORIDE [Concomitant]
  8. TERAZOSIN HCL [Concomitant]
  9. HUMULIN N [Concomitant]
  10. HUMALOG [Concomitant]
  11. GLYBURIDE [Concomitant]
  12. NIACIN [Concomitant]
  13. SIMVASTATIN [Concomitant]
  14. TRICOR [Concomitant]
  15. PRIMIDONE [Concomitant]
  16. KLOR-CON [Concomitant]
  17. FISH OIL [Concomitant]
  18. CALCIUM CARBONATE [Concomitant]

REACTIONS (1)
  - DEATH [None]
